FAERS Safety Report 6291174-9 (Version None)
Quarter: 2009Q3

REPORT INFORMATION
  Report Type: 
  Country: None (occurrence: None)
  Receive Date: 20090730
  Receipt Date: 20090723
  Transmission Date: 20100115
  Serious: Yes (Other)
  Sender: FDA-Public Use
  Company Number: B0585995A

PATIENT
  Sex: Male

DRUGS (4)
  1. PAXIL [Suspect]
     Indication: DRUG USE FOR UNKNOWN INDICATION
     Route: 048
  2. DIAZEPAM [Concomitant]
     Route: 065
  3. SOLANAX [Concomitant]
     Route: 048
  4. RIZE [Concomitant]
     Route: 048

REACTIONS (6)
  - DEAFNESS NEUROSENSORY [None]
  - DRY THROAT [None]
  - MUSCULOSKELETAL STIFFNESS [None]
  - PYREXIA [None]
  - SENSORY LOSS [None]
  - TINNITUS [None]
